FAERS Safety Report 26132409 (Version 5)
Quarter: 2025Q4

REPORT INFORMATION
  Report Type: Report from Study
  Country: CA (occurrence: CA)
  Receive Date: 20251208
  Receipt Date: 20251224
  Transmission Date: 20260117
  Serious: Yes (Hospitalization, Other)
  Sender: HLS THERAPEUTICS
  Company Number: CA-HLS-202503203

PATIENT
  Age: 24 Year
  Sex: Male

DRUGS (6)
  1. CLOZARIL [Suspect]
     Active Substance: CLOZAPINE
     Indication: Product used for unknown indication
     Route: 065
     Dates: end: 20251203
  2. CLOZARIL [Suspect]
     Active Substance: CLOZAPINE
     Indication: Product used for unknown indication
     Route: 048
     Dates: start: 20231018, end: 20250212
  3. CLOZARIL [Suspect]
     Active Substance: CLOZAPINE
     Indication: Product used for unknown indication
     Dosage: 12.5?MG?PO?HS (ORALLY AT BED TIME)?X?3?DAYS?AND?THEN?INCREASE?GRADUALLY UNTIL?HE?RETURNS?TO?HIS?ORIG
     Route: 048
     Dates: start: 20251208
  4. SUBOXONE [Concomitant]
     Active Substance: BUPRENORPHINE HYDROCHLORIDE\NALOXONE HYDROCHLORIDE
     Indication: Product used for unknown indication
     Route: 065
  5. Amphatamine [Concomitant]
     Indication: Product used for unknown indication
     Dosage: 4 ANTIDOPAMINERGIC MEDICATIONS
     Route: 065
  6. AMOXICILLIN [Concomitant]
     Active Substance: AMOXICILLIN
     Indication: Product used for unknown indication
     Dosage: 1G TID
     Route: 065

REACTIONS (12)
  - Mental status changes [Unknown]
  - Neutropenia [Recovered/Resolved]
  - Ataxia [Unknown]
  - Confusional state [Unknown]
  - Delirium [Unknown]
  - Lipase increased [Unknown]
  - Urine odour abnormal [Unknown]
  - Blood albumin decreased [Unknown]
  - Lethargy [Unknown]
  - Gait disturbance [Unknown]
  - Urinary tract infection [Unknown]
  - Abnormal behaviour [Unknown]

NARRATIVE: CASE EVENT DATE: 20251202
